FAERS Safety Report 24210016 (Version 1)
Quarter: 2024Q3

REPORT INFORMATION
  Report Type: Spontaneous
  Country: CN (occurrence: CN)
  Receive Date: 20240814
  Receipt Date: 20240814
  Transmission Date: 20241016
  Serious: Yes (Hospitalization)
  Sender: HISUN PHARMACEUTICALS
  Company Number: CN-Hisun Pharmaceuticals-2160382

PATIENT
  Age: 7 Year
  Sex: Male
  Weight: 26 kg

DRUGS (3)
  1. DACTINOMYCIN [Suspect]
     Active Substance: DACTINOMYCIN
     Indication: Rhabdomyosarcoma
     Route: 042
     Dates: start: 20240706, end: 20240706
  2. CYCLOPHOSPHAMIDE [Suspect]
     Active Substance: CYCLOPHOSPHAMIDE
     Route: 042
     Dates: start: 20240706, end: 20240706
  3. VINCRISTINE SULFATE [Suspect]
     Active Substance: VINCRISTINE SULFATE
     Route: 042
     Dates: start: 20240706, end: 20240706

REACTIONS (4)
  - Pruritus [Recovering/Resolving]
  - Vomiting [Recovered/Resolved]
  - Rash [Recovered/Resolved]
  - Gastrointestinal pain [Recovered/Resolved]

NARRATIVE: CASE EVENT DATE: 20240707
